FAERS Safety Report 8106940 (Version 5)
Quarter: 2013Q4

REPORT INFORMATION
  Report Type: Spontaneous
  Country: US (occurrence: US)
  Receive Date: 20110825
  Receipt Date: 20131127
  Transmission Date: 20140711
  Serious: Yes (Hospitalization)
  Sender: FDA-Public Use
  Company Number: US-BAYER-2011-074974

PATIENT
  Age: 23 Year
  Sex: Female
  Weight: 102.4 kg

DRUGS (2)
  1. YASMIN [Suspect]
     Dosage: UNK
     Dates: start: 2005
  2. PRENATAL VITAMINS [Concomitant]
     Dosage: UNK
     Dates: start: 20070423

REACTIONS (4)
  - Cholecystitis [None]
  - Gallbladder injury [None]
  - Injury [None]
  - Pain [None]
